FAERS Safety Report 16722676 (Version 2)
Quarter: 2019Q3

REPORT INFORMATION
  Report Type: Spontaneous
  Country: US (occurrence: US)
  Receive Date: 20190820
  Receipt Date: 20190927
  Transmission Date: 20191005
  Serious: No
  Sender: FDA-Public Use
  Company Number: US-ASTRAZENECA-2019SF07191

PATIENT
  Age: 29166 Day
  Sex: Male
  Weight: 106.1 kg

DRUGS (1)
  1. TUDORZA PRESSAIR [Suspect]
     Active Substance: ACLIDINIUM BROMIDE
     Indication: CHRONIC OBSTRUCTIVE PULMONARY DISEASE
     Route: 055
     Dates: start: 201807

REACTIONS (9)
  - Dyspnoea exertional [Unknown]
  - Product dose omission [Not Recovered/Not Resolved]
  - Incorrect dose administered by device [Unknown]
  - Gait disturbance [Unknown]
  - Eye disorder [Not Recovered/Not Resolved]
  - Visual impairment [Unknown]
  - Intentional device misuse [Unknown]
  - Body height decreased [Not Recovered/Not Resolved]
  - Device malfunction [Unknown]

NARRATIVE: CASE EVENT DATE: 20190718
